FAERS Safety Report 16919986 (Version 1)
Quarter: 2019Q4

REPORT INFORMATION
  Report Type: Report from Study
  Country: BR (occurrence: BR)
  Receive Date: 20191015
  Receipt Date: 20191015
  Transmission Date: 20200122
  Serious: Yes (Other)
  Sender: FDA-Public Use
  Company Number: BR-UCBSA-2019042453

PATIENT
  Age: 48 Year
  Sex: Female
  Weight: 64 kg

DRUGS (3)
  1. CIMZIA [Suspect]
     Active Substance: CERTOLIZUMAB PEGOL
     Indication: RHEUMATOID ARTHRITIS
     Dosage: 400 MILLIGRAM, EV 2 WEEKS(QOW)
     Route: 058
  2. DULOXETINA [DULOXETINE] [Concomitant]
     Active Substance: DULOXETINE
     Indication: FIBROMYALGIA
     Dosage: 30 MILLIGRAM, ONCE DAILY (QD)
     Route: 048
  3. FRONTAL [Concomitant]
     Active Substance: ALPRAZOLAM
     Indication: FIBROMYALGIA
     Dosage: 0.5 MILLIGRAM, ONCE DAILY (QD)
     Route: 048

REACTIONS (1)
  - Pneumonia viral [Recovered/Resolved]

NARRATIVE: CASE EVENT DATE: 20190917
